FAERS Safety Report 6272794-4 (Version None)
Quarter: 2009Q3

REPORT INFORMATION
  Report Type: 
  Country: None (occurrence: None)
  Receive Date: 20090717
  Receipt Date: 20090708
  Transmission Date: 20100115
  Serious: Yes (Hospitalization)
  Sender: FDA-Public Use
  Company Number: US-ABBOTT-09P-163-0496446-00

PATIENT
  Sex: Female
  Weight: 92 kg

DRUGS (6)
  1. HUMIRA [Suspect]
     Indication: COLITIS ULCERATIVE
     Route: 058
     Dates: start: 20081205, end: 20090105
  2. PROZAC [Concomitant]
     Indication: DEPRESSION
     Dates: start: 20080901
  3. CALCIUM [Concomitant]
     Indication: MINERAL SUPPLEMENTATION
     Dates: start: 20070101
  4. TYLENOL (CAPLET) [Concomitant]
     Indication: HEADACHE
     Dates: start: 20070101
  5. ADVAIR HFA [Concomitant]
     Indication: ASTHMA
     Route: 055
     Dates: start: 20080501
  6. FERROUS GLUCONATE [Concomitant]
     Indication: MINERAL SUPPLEMENTATION
     Dates: start: 20081227

REACTIONS (1)
  - SYNCOPE [None]
